FAERS Safety Report 8198537-5 (Version None)
Quarter: 2012Q1

REPORT INFORMATION
  Report Type: 
  Country: None (occurrence: None)
  Receive Date: 20120309
  Receipt Date: 20111219
  Transmission Date: 20120608
  Serious: No
  Sender: FDA-Public Use
  Company Number: US-AMGEN-USASP2011057785

PATIENT
  Age: 88 Year
  Sex: Female
  Weight: 47.619 kg

DRUGS (16)
  1. PROLIA [Suspect]
     Indication: OSTEOPOROSIS POSTMENOPAUSAL
     Dosage: 60 MG, Q6MO
     Route: 058
     Dates: start: 20110506
  2. PREMARIN [Concomitant]
     Dosage: UNK
     Dates: start: 20091001
  3. VITAMIN D [Concomitant]
     Dosage: UNK
     Dates: start: 20061005
  4. METRONIDAZOLE [Concomitant]
     Dosage: UNK
     Route: 061
     Dates: start: 20060101
  5. FUROSEMIDE [Concomitant]
     Dosage: UNK
     Dates: start: 20100219
  6. AMLODIPINE [Concomitant]
     Dosage: UNK
     Dates: start: 20080410
  7. FLONASE [Concomitant]
     Dosage: UNK
     Dates: start: 20090201
  8. LISINOPRIL [Concomitant]
     Dosage: UNK
     Dates: start: 20051101
  9. CIPROFLOXACIN [Concomitant]
     Dosage: UNK
     Dates: start: 20110602, end: 20110612
  10. PRILOSEC [Concomitant]
     Dosage: UNK
     Dates: start: 20100723
  11. ICAPS [Concomitant]
     Dosage: UNK
     Dates: start: 20061005
  12. CALCIUM [Concomitant]
     Dosage: UNK
     Dates: start: 20061005
  13. MULTI-VITAMINS [Concomitant]
     Dosage: UNK
     Dates: start: 20061005
  14. SOTALOL HCL [Concomitant]
     Dosage: UNK
     Dates: start: 20071203
  15. ASPIRIN [Concomitant]
     Dosage: 81 MG, UNK
     Dates: start: 20050101
  16. DIGOXIN [Concomitant]
     Dosage: UNK

REACTIONS (5)
  - RASH VESICULAR [None]
  - RASH PRURITIC [None]
  - URINARY TRACT INFECTION [None]
  - PEMPHIGOID [None]
  - RASH ERYTHEMATOUS [None]
